FAERS Safety Report 16196701 (Version 1)
Quarter: 2019Q2

REPORT INFORMATION
  Report Type: Spontaneous
  Country: US (occurrence: US)
  Receive Date: 20190412
  Receipt Date: 20190412
  Transmission Date: 20190711
  Serious: Yes (Life-Threatening, Hospitalization, Disabling)
  Sender: FDA-Public Use
  Company Number: None

PATIENT
  Age: 33 Year
  Sex: Male
  Weight: 110.7 kg

DRUGS (1)
  1. LORAZEPAM 1MG [Suspect]
     Active Substance: LORAZEPAM
     Indication: ANXIETY
     Dosage: ?          QUANTITY:18 TABLET(S);?
     Route: 048
     Dates: start: 20140901, end: 20190412

REACTIONS (2)
  - Suspected counterfeit product [None]
  - Drug ineffective [None]

NARRATIVE: CASE EVENT DATE: 20140901
